FAERS Safety Report 4286176-8 (Version None)
Quarter: 2004Q1

REPORT INFORMATION
  Report Type: 
  Country: None (occurrence: None)
  Receive Date: 20040205
  Receipt Date: 20040128
  Transmission Date: 20041129
  Serious: Yes (Other)
  Sender: FDA-Public Use
  Company Number: PHEH2004US01270

PATIENT
  Age: 23 Year
  Sex: Female

DRUGS (1)
  1. METHERGINE [Suspect]
     Dosage: .4 MG, ONCE/SINGLE
     Route: 048
     Dates: start: 20040124

REACTIONS (2)
  - COMPLICATIONS OF MATERNAL EXPOSURE TO THERAPEUTIC DRUGS [None]
  - SUPRAVENTRICULAR TACHYCARDIA [None]
